FAERS Safety Report 22291608 (Version 1)
Quarter: 2023Q2

REPORT INFORMATION
  Report Type: Spontaneous
  Country: CZ (occurrence: CZ)
  Receive Date: 20230507
  Receipt Date: 20230507
  Transmission Date: 20230722
  Serious: Yes (Hospitalization, Other)
  Sender: FDA-Public Use
  Company Number: CZ-MYLANLABS-2023M1041801

PATIENT
  Age: 45 Year
  Sex: Male

DRUGS (3)
  1. LEFLUNOMIDE [Suspect]
     Active Substance: LEFLUNOMIDE
     Indication: Skin disorder
     Dosage: 20 MILLIGRAM, DAILY
     Route: 065
  2. LEFLUNOMIDE [Suspect]
     Active Substance: LEFLUNOMIDE
     Indication: Psoriatic arthropathy
  3. ADALIMUMAB [Suspect]
     Active Substance: ADALIMUMAB
     Indication: Psoriatic arthropathy
     Dosage: 40 MILLIGRAM, 2 WEEKLY, (40 MILLIGRAM, BIWEEKLY (START DATE: 2010, STOP DATE: 2020))
     Route: 058

REACTIONS (8)
  - Extradural abscess [Recovered/Resolved]
  - Arthritis bacterial [Recovered/Resolved]
  - Cellulitis [Recovered/Resolved]
  - Erysipelas [Recovered/Resolved]
  - C-reactive protein increased [Recovered/Resolved]
  - Pain [Recovered/Resolved]
  - Pyrexia [Recovered/Resolved]
  - Drug ineffective [Not Recovered/Not Resolved]

NARRATIVE: CASE EVENT DATE: 20100101
